FAERS Safety Report 24536769 (Version 1)
Quarter: 2024Q4

REPORT INFORMATION
  Report Type: Spontaneous
  Country: US (occurrence: US)
  Receive Date: 20241022
  Receipt Date: 20241022
  Transmission Date: 20250115
  Serious: Yes (Other)
  Sender: COOPERSURGICAL
  Company Number: US-COOPERSURGICAL, INC.-2024CPS002888

PATIENT
  Sex: Female
  Weight: 93.878 kg

DRUGS (4)
  1. PARAGARD T 380A [Suspect]
     Active Substance: COPPER
     Indication: Contraception
     Dosage: UNK
     Route: 015
     Dates: start: 20230505, end: 20240919
  2. METFORMIN [Suspect]
     Active Substance: METFORMIN HYDROCHLORIDE
     Dosage: 1 TABLET (500 MG), 2X/DAY (WITH MORNING AND EVENING MEALS)
     Dates: start: 20240909, end: 2024
  3. BUPROPION HYDROCHLORIDE XL [Concomitant]
     Active Substance: BUPROPION HYDROCHLORIDE
     Dosage: 1 EXTENDED RELEASE TABLET (150 MG), 2X/DAY
     Route: 048
     Dates: start: 20240909
  4. NALTREXONE [Concomitant]
     Active Substance: NALTREXONE
     Dosage: UNK, 1X/DAY
     Route: 048
     Dates: start: 20240909

REACTIONS (9)
  - Ovarian cyst [Unknown]
  - Embedded device [Recovered/Resolved]
  - Obesity [Unknown]
  - Fatigue [Unknown]
  - Abnormal uterine bleeding [Unknown]
  - Heavy menstrual bleeding [Unknown]
  - Intermenstrual bleeding [Unknown]
  - Menstruation irregular [Unknown]
  - Nausea [Unknown]

NARRATIVE: CASE EVENT DATE: 20240101
